FAERS Safety Report 9835221 (Version 1)
Quarter: 2014Q1

REPORT INFORMATION
  Report Type: Spontaneous
  Country: US (occurrence: US)
  Receive Date: 20140122
  Receipt Date: 20140122
  Transmission Date: 20141002
  Serious: No
  Sender: FDA-Public Use
  Company Number: US-BRISTOL-MYERS SQUIBB COMPANY-19874783

PATIENT
  Age: 76 Year
  Sex: Female

DRUGS (4)
  1. COUMADIN [Suspect]
     Indication: ATRIAL FIBRILLATION
  2. ELIQUIS [Suspect]
     Indication: ATRIAL FIBRILLATION
  3. TRAMADOL [Concomitant]
  4. SIMVASTATIN [Concomitant]

REACTIONS (1)
  - Epistaxis [Unknown]
